FAERS Safety Report 7396717-X (Version None)
Quarter: 2011Q2

REPORT INFORMATION
  Report Type: 
  Country: None (occurrence: None)
  Receive Date: 20110406
  Receipt Date: 20101029
  Transmission Date: 20111010
  Serious: Yes (Disabling, Other)
  Sender: FDA-Public Use
  Company Number: JP-ROCHE-720452

PATIENT
  Sex: Female
  Weight: 34 kg

DRUGS (6)
  1. RAMELTEON [Concomitant]
     Route: 042
     Dates: start: 20100519, end: 20100602
  2. FLUOROURACIL [Concomitant]
     Route: 040
     Dates: start: 20100519, end: 20100601
  3. DECADRON [Concomitant]
     Route: 042
     Dates: start: 20100519, end: 20100602
  4. ELPLAT [Concomitant]
     Route: 041
     Dates: start: 20100519, end: 20100602
  5. AVASTIN [Suspect]
     Indication: RECTAL CANCER METASTATIC
     Route: 041
     Dates: start: 20100602, end: 20100602
  6. LEVOFOLINATE [Concomitant]
     Route: 041
     Dates: start: 20100519, end: 20100602

REACTIONS (5)
  - EMBOLIC CEREBRAL INFARCTION [None]
  - PROTHROMBIN LEVEL INCREASED [None]
  - TUMOUR LYSIS SYNDROME [None]
  - PLATELET COUNT DECREASED [None]
  - WHITE BLOOD CELL COUNT DECREASED [None]
